FAERS Safety Report 7598261-3 (Version None)
Quarter: 2011Q3

REPORT INFORMATION
  Report Type: 
  Country: None (occurrence: None)
  Receive Date: 20110708
  Receipt Date: 20110629
  Transmission Date: 20111222
  Serious: Yes (Other)
  Sender: FDA-Public Use
  Company Number: JP-PFIZER INC-2011144642

PATIENT
  Age: 52 Year
  Sex: Female

DRUGS (4)
  1. AURANOFIN [Suspect]
  2. SULFASALAZINE [Suspect]
     Dosage: UNK
  3. BUCILLAMINE [Concomitant]
  4. MIZORIBINE [Suspect]

REACTIONS (2)
  - HEPATIC FUNCTION ABNORMAL [None]
  - RENAL IMPAIRMENT [None]
